FAERS Safety Report 10053007 (Version 1)
Quarter: 2014Q2

REPORT INFORMATION
  Report Type: Spontaneous
  Country: ES (occurrence: ES)
  Receive Date: 20140402
  Receipt Date: 20140402
  Transmission Date: 20141212
  Serious: Yes (Hospitalization)
  Sender: FDA-Public Use
  Company Number: PHHY2014ES037190

PATIENT
  Age: 52 Year
  Sex: Female

DRUGS (7)
  1. TACROLIMUS [Suspect]
     Indication: RENAL TRANSPLANT
     Dosage: 10 MG, QD
  2. TACROLIMUS [Interacting]
     Dosage: 8.5 MG, QD
  3. TACROLIMUS [Interacting]
     Dosage: 7.5 MG, QD
  4. TACROLIMUS [Interacting]
     Dosage: 11.5 MG, QD
  5. DRONEDARONE [Interacting]
     Indication: ARRHYTHMIA
     Dosage: 400 MG, Q12H
  6. RIVAROXABAN [Concomitant]
     Indication: THROMBOSIS PROPHYLAXIS
  7. ENOXAPARIN [Concomitant]
     Indication: ANTICOAGULANT THERAPY

REACTIONS (7)
  - Renal impairment [Unknown]
  - Blood creatinine increased [Recovered/Resolved]
  - Fluid overload [Recovering/Resolving]
  - Oedema [Recovering/Resolving]
  - Fatigue [Unknown]
  - Drug interaction [Unknown]
  - Drug level above therapeutic [Recovering/Resolving]
